FAERS Safety Report 4870647-7 (Version None)
Quarter: 2005Q4

REPORT INFORMATION
  Report Type: 
  Country: None (occurrence: None)
  Receive Date: 20051228
  Receipt Date: 20051215
  Transmission Date: 20060501
  Serious: Yes (Death)
  Sender: FDA-Public Use
  Company Number: MK200512-0320-1

PATIENT
  Age: 25 Year
  Sex: Male

DRUGS (1)
  1. METHADOSE [Suspect]
     Dosage: UNK
     Route: 065
     Dates: start: 20051209, end: 20051210

REACTIONS (1)
  - CYANOSIS [None]
